FAERS Safety Report 18605006 (Version 1)
Quarter: 2020Q4

REPORT INFORMATION
  Report Type: Spontaneous
  Country: US (occurrence: US)
  Receive Date: 20201211
  Receipt Date: 20201211
  Transmission Date: 20210114
  Serious: Yes (Death)
  Sender: FDA-Public Use
  Company Number: None

PATIENT
  Sex: Female

DRUGS (22)
  1. VIT D [Concomitant]
     Active Substance: VITAMIN D NOS
  2. PROCHLORPER [Concomitant]
  3. ESTER C [Concomitant]
  4. POT CL MICRO TAB [Concomitant]
  5. OMEPRAZOLE. [Concomitant]
     Active Substance: OMEPRAZOLE
  6. NASAL DECONG SPR [Concomitant]
  7. CEPHALEXIN. [Concomitant]
     Active Substance: CEPHALEXIN
  8. FENTANYL. [Concomitant]
     Active Substance: FENTANYL
  9. HYDROMORPHON [Concomitant]
     Active Substance: HYDROMORPHONE
  10. PHENZOPYRID [Concomitant]
  11. ALBUTEROL. [Concomitant]
     Active Substance: ALBUTEROL
  12. FOLIC ACID. [Concomitant]
     Active Substance: FOLIC ACID
  13. POT CHLORIDE [Concomitant]
     Active Substance: POTASSIUM CHLORIDE
  14. METOPRL TAR [Concomitant]
  15. LORBRENA [Suspect]
     Active Substance: LORLATINIB
     Indication: LUNG NEOPLASM MALIGNANT
     Route: 048
     Dates: start: 20200911
  16. METOCLOPRAM [Concomitant]
     Active Substance: METOCLOPRAMIDE
  17. DEXAMTHASON [Concomitant]
  18. ROSUVASTATIN. [Concomitant]
     Active Substance: ROSUVASTATIN
  19. FUROSEMIDE. [Concomitant]
     Active Substance: FUROSEMIDE
  20. ASPIRIN. [Concomitant]
     Active Substance: ASPIRIN
  21. TRAMADOL. [Concomitant]
     Active Substance: TRAMADOL
  22. METOCLOPRAM [Concomitant]
     Active Substance: METOCLOPRAMIDE

REACTIONS (1)
  - Death [None]
